FAERS Safety Report 21167703 (Version 1)
Quarter: 2022Q3

REPORT INFORMATION
  Report Type: Spontaneous
  Country: JP (occurrence: JP)
  Receive Date: 20220803
  Receipt Date: 20220803
  Transmission Date: 20221027
  Serious: Yes (Hospitalization)
  Sender: FDA-Public Use
  Company Number: JP-ELI_LILLY_AND_COMPANY-JP202207001826

PATIENT
  Age: 82 Year
  Sex: Female

DRUGS (5)
  1. OLUMIANT [Suspect]
     Active Substance: BARICITINIB
     Indication: Rheumatoid arthritis
     Dosage: 2 MG, DAILY
     Route: 048
     Dates: start: 20210520, end: 20220621
  2. PREDONINE [Concomitant]
     Active Substance: PREDNISOLONE
     Indication: Rheumatoid arthritis
     Dosage: UNK
     Dates: start: 20170608
  3. IGURATIMOD [Concomitant]
     Active Substance: IGURATIMOD
     Indication: Rheumatoid arthritis
     Dosage: 50 MG, UNKNOWN
     Route: 048
     Dates: start: 20200206, end: 20220621
  4. SULFAMETHOXAZOLE\TRIMETHOPRIM [Concomitant]
     Active Substance: SULFAMETHOXAZOLE\TRIMETHOPRIM
     Indication: Prophylaxis
     Dosage: 1 DOSAGE FORM, WEEKLY (1/W)
     Route: 048
     Dates: start: 20210520
  5. MINODRONIC ACID [Concomitant]
     Active Substance: MINODRONIC ACID
     Indication: Osteoporosis
     Dosage: 50 MG, MONTHLY (1/M)
     Route: 048
     Dates: start: 20170608

REACTIONS (1)
  - Diffuse large B-cell lymphoma stage IV [Not Recovered/Not Resolved]

NARRATIVE: CASE EVENT DATE: 20220621
